FAERS Safety Report 4919761-8 (Version None)
Quarter: 2006Q1

REPORT INFORMATION
  Report Type: 
  Country: None (occurrence: None)
  Receive Date: 20060217
  Receipt Date: 20060206
  Transmission Date: 20060701
  Serious: Yes (Hospitalization, Other)
  Sender: FDA-Public Use
  Company Number: 2006018561

PATIENT
  Sex: Male

DRUGS (3)
  1. LIPITOR [Suspect]
     Indication: BLOOD CHOLESTEROL
     Dosage: 20 MG
     Route: 048
  2. HYDROCHLOROTHIAZIDE [Concomitant]
  3. TERAZOSIN [Concomitant]

REACTIONS (14)
  - ARTHRALGIA [None]
  - BLOOD CHOLESTEROL INCREASED [None]
  - BLOOD TESTOSTERONE DECREASED [None]
  - DECREASED ACTIVITY [None]
  - DIFFICULTY IN WALKING [None]
  - ELECTROLYTE IMBALANCE [None]
  - FATIGUE [None]
  - HEART RATE INCREASED [None]
  - HYPOAESTHESIA [None]
  - MICTURITION URGENCY [None]
  - PAIN IN EXTREMITY [None]
  - PROCEDURAL COMPLICATION [None]
  - STRESS [None]
  - WEIGHT INCREASED [None]
